FAERS Safety Report 6726416-6 (Version None)
Quarter: 2010Q2

REPORT INFORMATION
  Report Type: 
  Country: None (occurrence: None)
  Receive Date: 20100514
  Receipt Date: 20100510
  Transmission Date: 20101027
  Serious: Yes (Life-Threatening, Hospitalization)
  Sender: FDA-Public Use
  Company Number: IN-ELI_LILLY_AND_COMPANY-IN200801002357

PATIENT
  Sex: Female
  Weight: 44 kg

DRUGS (5)
  1. GEMCITABINE HCL [Suspect]
     Indication: BREAST CANCER
     Dosage: 320 MG/M2, DAY 1 AND 8 EVER 3 WKS
     Route: 042
     Dates: start: 20071113, end: 20080104
  2. VINFLUNINE [Suspect]
     Indication: BREAST CANCER
     Dosage: 320 MG/M2, DAY 1 OF EVERY 3 WK CYCLE
     Route: 042
     Dates: start: 20071113, end: 20071228
  3. TRAMADOL HCL [Concomitant]
     Dosage: UNK, UNK
     Dates: start: 20070101
  4. LINCTUS CODEINE [Concomitant]
     Dosage: UNK, UNK
     Dates: start: 20070101
  5. NORFLOXACIN [Concomitant]
     Dates: start: 20080105, end: 20080105

REACTIONS (4)
  - FEBRILE NEUTROPENIA [None]
  - GRAND MAL CONVULSION [None]
  - NEUTROPENIC INFECTION [None]
  - URINARY TRACT INFECTION [None]
